FAERS Safety Report 10398108 (Version 1)
Quarter: 2014Q1

REPORT INFORMATION
  Report Type: Spontaneous
  Country: US (occurrence: None)
  Receive Date: 20130815
  Receipt Date: 20130815
  Transmission Date: 20141002
  Serious: Yes (Hospitalization, Other)
  Sender: FDA-Public Use
  Company Number: ADR-2012-01107

PATIENT
  Sex: Male

DRUGS (2)
  1. LIORESAL INTRATHECAL (BACLOFEN INJECTION) [Suspect]
     Indication: MUSCLE SPASTICITY
  2. LIORESAL INTRATHECAL (BACLOFEN INJECTION) [Suspect]
     Indication: CEREBRAL PALSY

REACTIONS (13)
  - Muscle rigidity [None]
  - Incision site erythema [None]
  - Skin warm [None]
  - Pain in extremity [None]
  - Malaise [None]
  - Vision blurred [None]
  - Implant site oedema [None]
  - Eye disorder [None]
  - Tremor [None]
  - Therapeutic response unexpected [None]
  - Feeling abnormal [None]
  - Pain [None]
  - Drug withdrawal syndrome [None]
